FAERS Safety Report 26127889 (Version 2)
Quarter: 2025Q4

REPORT INFORMATION
  Report Type: Spontaneous
  Country: US (occurrence: US)
  Receive Date: 20251206
  Receipt Date: 20251211
  Transmission Date: 20260118
  Serious: No
  Sender: MERCK SHARP & DOHME LLC
  Company Number: US-009507513-2350961

PATIENT
  Sex: Female

DRUGS (1)
  1. KEYTRUDA QLEX [Suspect]
     Active Substance: BERAHYALURONIDASE ALFA-PMPH\PEMBROLIZUMAB
     Dates: start: 2025, end: 2025

REACTIONS (2)
  - Injection site pruritus [Unknown]
  - Injection site erythema [Unknown]

NARRATIVE: CASE EVENT DATE: 20250101
